FAERS Safety Report 8215321-4 (Version None)
Quarter: 2012Q1

REPORT INFORMATION
  Report Type: 
  Country: None (occurrence: None)
  Receive Date: 20120229
  Receipt Date: 20111012
  Transmission Date: 20120608
  Serious: Yes (Hospitalization)
  Sender: FDA-Public Use
  Company Number: PHEH2011US06746

PATIENT
  Age: 22 Year
  Sex: Female
  Weight: 102 kg

DRUGS (3)
  1. CYCLOSPORINE [Suspect]
     Indication: PROPHYLAXIS AGAINST TRANSPLANT REJECTION
     Dosage: 200 MG, DAILY; 250 MG, DAILY; 200 MG, DAILY
     Dates: start: 20091107
  2. CYCLOSPORINE [Suspect]
     Indication: PROPHYLAXIS AGAINST TRANSPLANT REJECTION
     Dosage: 200 MG, DAILY; 250 MG, DAILY; 200 MG, DAILY
     Dates: start: 20091118
  3. CYCLOSPORINE [Suspect]
     Indication: PROPHYLAXIS AGAINST TRANSPLANT REJECTION
     Dosage: 200 MG, DAILY; 250 MG, DAILY; 200 MG, DAILY
     Dates: start: 20100528

REACTIONS (3)
  - CONFUSIONAL STATE [None]
  - GINGIVAL SWELLING [None]
  - TINEA INFECTION [None]
